FAERS Safety Report 10169194 (Version 1)
Quarter: 2014Q2

REPORT INFORMATION
  Report Type: Spontaneous
  Country: US (occurrence: US)
  Receive Date: 20140513
  Receipt Date: 20140513
  Transmission Date: 20141212
  Serious: No
  Sender: FDA-Public Use
  Company Number: US-B.I. PHARMACEUTICALS,INC./RIDGEFIELD-2014-BI-19945BP

PATIENT
  Sex: Female

DRUGS (19)
  1. MELOXICAM [Suspect]
     Indication: PRODUCT USED FOR UNKNOWN INDICATION
     Route: 065
  2. SKELAXIN [Concomitant]
     Indication: MUSCLE SPASMS
     Dosage: 2400 MG
     Route: 048
  3. LEVOTHYROXINE SODIUM [Concomitant]
     Dosage: 100 MCG
     Route: 048
  4. PROMETHAZINE HCL [Concomitant]
     Dosage: 25 MG
     Route: 048
  5. FISH OIL [Concomitant]
     Dosage: 1000 MG
     Route: 048
  6. MECLIZINE HCL [Concomitant]
     Dosage: 100 MG
     Route: 048
  7. FEXOFENADINE HCL [Concomitant]
     Dosage: 120 MG
     Route: 048
  8. ISOMETHEPTENE-APA-DICHLORAL [Concomitant]
     Indication: HEADACHE
     Dosage: STRENGHT: 65-325-100 MG
     Route: 048
  9. VOLTAREN [Concomitant]
     Dosage: DOSE PER APPLICATION: 1 % GEL
     Route: 062
  10. HANDICAP PLACARD [Concomitant]
     Route: 065
  11. IBUPROFEN [Concomitant]
     Dosage: 2400 MG
     Route: 048
  12. MULTIVITAMIN GUMMIES ADULT [Concomitant]
     Dosage: FORMULATION: GUMMIES TABLET CHEWABLE
     Route: 048
  13. XOPENEX HFA [Concomitant]
     Dosage: DOSE PER APPLICATION: 45 MCG/ ACT, 2 PUFFS
     Route: 055
  14. CHONDROTIN-GLUCOSAMINE [Concomitant]
     Dosage: STRENGTH: 400MG- 500MG
     Route: 048
  15. TUMS [Concomitant]
     Route: 048
  16. MUCINEX [Concomitant]
     Dosage: FORMULATION: TABLET, EXTENDED RELEASE
     Route: 048
  17. FLAX SEED OIL [Concomitant]
     Dosage: 1 ANZ
     Route: 048
  18. NEXIUM [Concomitant]
     Dosage: 40 MG
     Route: 048
  19. TRAMADOL HCT [Concomitant]
     Dosage: 200 MG
     Route: 048

REACTIONS (1)
  - Abdominal discomfort [Unknown]
